FAERS Safety Report 6943690-1 (Version None)
Quarter: 2010Q3

REPORT INFORMATION
  Report Type: 
  Country: None (occurrence: None)
  Receive Date: 20100826
  Receipt Date: 20100812
  Transmission Date: 20110219
  Serious: Yes (Death, Other)
  Sender: FDA-Public Use
  Company Number: US-ELI_LILLY_AND_COMPANY-US201008003640

PATIENT
  Sex: Male

DRUGS (2)
  1. EFFIENT [Suspect]
     Indication: STENT PLACEMENT
     Dosage: 10 MG, DAILY (1/D)
     Dates: start: 20100501
  2. ASPIRIN [Concomitant]
     Dates: start: 20100501

REACTIONS (2)
  - CAROTID ARTERY OCCLUSION [None]
  - SUBARACHNOID HAEMORRHAGE [None]
